FAERS Safety Report 5073432-9 (Version None)
Quarter: 2006Q3

REPORT INFORMATION
  Report Type: 
  Country: None (occurrence: None)
  Receive Date: 20060803
  Receipt Date: 20060731
  Transmission Date: 20061208
  Serious: Yes (Other)
  Sender: FDA-Public Use
  Company Number: C2006-200-809

PATIENT
  Sex: Female

DRUGS (2)
  1. CEFAZOLIN [Suspect]
     Indication: PREOPERATIVE CARE
     Dosage: 1, 5X
     Dates: start: 20051215, end: 20060227
  2. CEFAZOLIN [Suspect]
     Indication: PROPHYLAXIS
     Dosage: 1, 5X
     Dates: start: 20051215, end: 20060227

REACTIONS (4)
  - POOR QUALITY DRUG ADMINISTERED [None]
  - STAPHYLOCOCCAL INFECTION [None]
  - STREPTOCOCCAL INFECTION [None]
  - THERAPEUTIC PRODUCT CONTAMINATION [None]
